FAERS Safety Report 7957207-6 (Version None)
Quarter: 2011Q4

REPORT INFORMATION
  Report Type: 
  Country: None (occurrence: None)
  Receive Date: 20111205
  Receipt Date: 20111129
  Transmission Date: 20120403
  Serious: Yes (Death, Other)
  Sender: FDA-Public Use
  Company Number: DE-B.I. PHARMACEUTICALS,INC./RIDGEFIELD-2011-EU-00310GD

PATIENT
  Age: 75 Year
  Sex: Male
  Weight: 75 kg

DRUGS (2)
  1. DABIGATRAN [Suspect]
     Indication: ANTICOAGULANT THERAPY
     Dosage: 300 MG
     Dates: start: 20101019, end: 20110101
  2. TINZAPARIN [Suspect]
     Indication: ANTICOAGULANT THERAPY
     Dosage: 1 X 0.5 ML
     Dates: start: 20101007

REACTIONS (5)
  - THROMBOSIS [None]
  - OFF LABEL USE [None]
  - NEOPLASM PROGRESSION [None]
  - PLEURAL HAEMORRHAGE [None]
  - SQUAMOUS CELL CARCINOMA OF SKIN [None]
